FAERS Safety Report 6119571-2 (Version None)
Quarter: 2009Q1

REPORT INFORMATION
  Report Type: 
  Country: None (occurrence: None)
  Receive Date: 20090316
  Receipt Date: 20090312
  Transmission Date: 20090719
  Serious: Yes (Hospitalization)
  Sender: FDA-Public Use
  Company Number: B0564674A

PATIENT
  Age: 77 Year
  Sex: Male

DRUGS (7)
  1. SERETIDE [Suspect]
     Route: 065
  2. SITAGLIPTIN PHOSPHATE [Suspect]
     Dosage: 100MG SINGLE DOSE
     Route: 048
     Dates: start: 20090124, end: 20090124
  3. DIGITALINE NATIVELLE [Suspect]
     Route: 048
  4. PREVISCAN [Suspect]
     Dosage: .75UNIT PER DAY
     Route: 048
  5. RAMIPRIL [Suspect]
     Dosage: 10MG PER DAY
     Route: 048
  6. LASIX [Suspect]
     Dosage: 40MG PER DAY
     Route: 048
  7. SPIRIVA [Suspect]
     Route: 055

REACTIONS (3)
  - ABDOMINAL PAIN [None]
  - ANGIOEDEMA [None]
  - PALATAL OEDEMA [None]
